FAERS Safety Report 8237427-6 (Version None)
Quarter: 2012Q1

REPORT INFORMATION
  Report Type: 
  Country: None (occurrence: None)
  Receive Date: 20120327
  Receipt Date: 20120319
  Transmission Date: 20120608
  Serious: Yes (Death)
  Sender: FDA-Public Use
  Company Number: US-BAYER-2011-063193

PATIENT
  Age: 48 Year
  Sex: Female
  Weight: 102.4 kg

DRUGS (2)
  1. DROSPIRENONE AND ETHINYL ESTRADIOL [Suspect]
     Dosage: UNK
     Dates: start: 20070101, end: 20090101
  2. YAZ [Suspect]
     Dosage: UNK
     Dates: start: 20070101, end: 20090101

REACTIONS (4)
  - INJURY [None]
  - PULMONARY EMBOLISM [None]
  - THROMBOSIS [None]
  - PAIN [None]
